FAERS Safety Report 8791856 (Version 3)
Quarter: 2012Q4

REPORT INFORMATION
  Report Type: 
  Country: JP (occurrence: JP)
  Receive Date: 20120918
  Receipt Date: 20121219
  Transmission Date: 20130627
  Serious: Yes (Death, Hospitalization, Disabling, Other)
  Sender: FDA-Public Use
  Company Number: JP-ELI_LILLY_AND_COMPANY-JP201208000444

PATIENT
  Age: 63 Year
  Sex: Male
  Weight: 78 kg

DRUGS (11)
  1. ALIMTA [Suspect]
     Indication: LUNG ADENOCARCINOMA STAGE IV
     Dosage: UNK
     Route: 042
     Dates: start: 20101105
  2. ALIMTA [Suspect]
     Dosage: 800 mg, UNK
     Route: 042
     Dates: start: 20120713, end: 20120713
  3. CISPLATIN [Concomitant]
     Indication: LUNG ADENOCARCINOMA STAGE IV
     Dosage: UNK
     Dates: start: 20101105
  4. CARBOPLATIN [Concomitant]
     Indication: LUNG ADENOCARCINOMA STAGE IV
     Dosage: UNK
     Dates: start: 20101210, end: 20110318
  5. CARBOPLATIN [Concomitant]
     Dosage: UNK
     Dates: start: 20111128, end: 20120418
  6. DOCETAXEL [Concomitant]
     Indication: LUNG ADENOCARCINOMA STAGE IV
     Dosage: UNK
     Dates: start: 20101210, end: 20110318
  7. DOCETAXEL [Concomitant]
     Dosage: UNK
     Dates: start: 20111128, end: 20120418
  8. METHYCOBAL [Concomitant]
     Indication: PROPHYLAXIS
     Dosage: 1000 ug, UNK
     Route: 030
     Dates: start: 20120511, end: 20120713
  9. PANVITAN                           /00466101/ [Concomitant]
     Dosage: UNK
     Dates: start: 20120511
  10. GRANISETRON                        /01178102/ [Concomitant]
     Indication: PROPHYLAXIS
     Dosage: 3 mg, UNK
     Dates: start: 20120713, end: 20120713
  11. DECADRON                           /00016002/ [Concomitant]
     Indication: PROPHYLAXIS
     Dosage: 3.3 mg, UNK
     Route: 042
     Dates: start: 20120713, end: 20120713

REACTIONS (7)
  - Disseminated intravascular coagulation [Fatal]
  - Bone marrow failure [Fatal]
  - Sepsis [Fatal]
  - Anaphylactic shock [Unknown]
  - Pleural effusion [Recovered/Resolved]
  - Renal disorder [Not Recovered/Not Resolved]
  - Nephrogenic anaemia [Unknown]
